FAERS Safety Report 15023083 (Version 1)
Quarter: 2018Q2

REPORT INFORMATION
  Report Type: Spontaneous
  Country: US (occurrence: US)
  Receive Date: 20180618
  Receipt Date: 20180618
  Transmission Date: 20180711
  Serious: Yes (Other)
  Sender: FDA-Public Use
  Company Number: US-BAYER-2018-111290

PATIENT
  Age: 41 Year
  Sex: Female

DRUGS (2)
  1. MIRENA [Suspect]
     Active Substance: LEVONORGESTREL
     Indication: GENITAL HAEMORRHAGE
  2. MIRENA [Suspect]
     Active Substance: LEVONORGESTREL
     Indication: CONTRACEPTION
     Dosage: 20 MCG/24HR, CONT
     Route: 015
     Dates: start: 20130620, end: 20180611

REACTIONS (6)
  - Vaginal haemorrhage [None]
  - Abdominal pain lower [None]
  - Amenorrhoea [None]
  - Post procedural haemorrhage [None]
  - Hypomenorrhoea [None]
  - Adverse event [None]

NARRATIVE: CASE EVENT DATE: 201306
